FAERS Safety Report 21568550 (Version 2)
Quarter: 2022Q4

REPORT INFORMATION
  Report Type: Report from Study
  Country: US (occurrence: US)
  Receive Date: 20221108
  Receipt Date: 20221213
  Transmission Date: 20230113
  Serious: Yes (Hospitalization, Other)
  Sender: FDA-Public Use
  Company Number: US-TAKEDA-2022TUS083078

PATIENT
  Age: 9 Year
  Sex: Female
  Weight: 23.9 kg

DRUGS (17)
  1. TEDUGLUTIDE [Suspect]
     Active Substance: TEDUGLUTIDE
     Indication: Short-bowel syndrome
     Route: 042
  2. TEDUGLUTIDE [Suspect]
     Active Substance: TEDUGLUTIDE
     Indication: Short-bowel syndrome
     Route: 042
  3. TEDUGLUTIDE [Suspect]
     Active Substance: TEDUGLUTIDE
     Indication: Short-bowel syndrome
     Route: 042
  4. TEDUGLUTIDE [Suspect]
     Active Substance: TEDUGLUTIDE
     Indication: Short-bowel syndrome
     Route: 042
  5. VANCOMYCIN [Concomitant]
     Active Substance: VANCOMYCIN
     Indication: Pyrexia
     Dosage: 370 MILLIGRAM, SINGLE
     Route: 042
     Dates: start: 20221012, end: 20221012
  6. VANCOMYCIN [Concomitant]
     Active Substance: VANCOMYCIN
     Dosage: 370 MILLIGRAM, SINGLE
     Route: 042
     Dates: start: 20221012, end: 20221012
  7. VANCOMYCIN [Concomitant]
     Active Substance: VANCOMYCIN
     Dosage: 365 MILLIGRAM, TID
     Route: 042
     Dates: start: 20221119, end: 20221121
  8. ACETAMINOPHEN [Concomitant]
     Active Substance: ACETAMINOPHEN
     Indication: Pain
     Dosage: 325 MILLIGRAM, SINGLE
     Route: 050
     Dates: start: 20221012, end: 20221012
  9. ACETAMINOPHEN [Concomitant]
     Active Substance: ACETAMINOPHEN
     Dosage: 370 MILLIGRAM, TID
     Route: 042
     Dates: start: 20221012, end: 20221014
  10. ACETAMINOPHEN [Concomitant]
     Active Substance: ACETAMINOPHEN
     Dosage: 320 MILLIGRAM, Q6HR
     Route: 042
     Dates: start: 20221030, end: 20221030
  11. LANSOPRAZOLE [Concomitant]
     Active Substance: LANSOPRAZOLE
     Indication: Gastrooesophageal reflux disease
     Dosage: 15 MILLIGRAM, QD
     Route: 048
     Dates: start: 20221014, end: 20221019
  12. LANSOPRAZOLE [Concomitant]
     Active Substance: LANSOPRAZOLE
     Dosage: 15 MILLIGRAM, QD
     Route: 050
     Dates: start: 20221030
  13. HEPARIN [Concomitant]
     Active Substance: HEPARIN SODIUM
     Indication: Flushing
     Dosage: UNK UNK, QD
     Route: 042
     Dates: start: 20221030
  14. BUDESONIDE [Concomitant]
     Active Substance: BUDESONIDE
     Indication: Inflammation
     Dosage: 0.5 MILLIGRAM, QD
     Route: 050
     Dates: start: 20221030
  15. PULMICORT TURBUHALER [Concomitant]
     Active Substance: BUDESONIDE
     Indication: Inflammation
     Dosage: 0.5 MILLIGRAM, QD
     Route: 050
     Dates: start: 20221030
  16. SODIUM CHLORIDE [Concomitant]
     Active Substance: SODIUM CHLORIDE
     Indication: Dehydration
     Dosage: UNK
     Route: 042
     Dates: start: 20221030
  17. POTASSIUM CHLORIDE [Concomitant]
     Active Substance: POTASSIUM CHLORIDE
     Indication: Dehydration
     Dosage: UNK
     Route: 042
     Dates: start: 20221030

REACTIONS (4)
  - Influenza [Recovered/Resolved]
  - Norovirus infection [Recovered/Resolved]
  - Clostridium difficile infection [Recovered/Resolved]
  - Pancreatitis viral [Recovered/Resolved]

NARRATIVE: CASE EVENT DATE: 20221012
